FAERS Safety Report 17706722 (Version 2)
Quarter: 2020Q2

REPORT INFORMATION
  Report Type: Spontaneous
  Country: US (occurrence: US)
  Receive Date: 20200424
  Receipt Date: 20200429
  Transmission Date: 20200714
  Serious: No
  Sender: FDA-Public Use
  Company Number: US-BAXTER-2020BAX008546

PATIENT
  Age: 33 Year
  Sex: Female
  Weight: 75 kg

DRUGS (1)
  1. 0.9% SODIUM CHLORIDE INJECTION [Suspect]
     Active Substance: SODIUM CHLORIDE
     Indication: IRRIGATION THERAPY
     Route: 042
     Dates: start: 202004

REACTIONS (7)
  - Medication error [Unknown]
  - Poor quality product administered [Unknown]
  - Dyspepsia [Not Recovered/Not Resolved]
  - Wrong technique in product usage process [Unknown]
  - Abdominal pain upper [Not Recovered/Not Resolved]
  - Abdominal discomfort [Unknown]
  - Blood test abnormal [Not Recovered/Not Resolved]

NARRATIVE: CASE EVENT DATE: 202004
